FAERS Safety Report 10043534 (Version 3)
Quarter: 2014Q2

REPORT INFORMATION
  Report Type: Spontaneous
  Country: JP (occurrence: JP)
  Receive Date: 20140328
  Receipt Date: 20140411
  Transmission Date: 20141212
  Serious: Yes (Other)
  Sender: FDA-Public Use
  Company Number: JP-BAYER-2014-039651

PATIENT
  Age: 36 Year
  Sex: Female

DRUGS (5)
  1. ACETYLSALICYLIC ACID({=100 MG) [Suspect]
     Route: 048
  2. UNFRACTIONATED HEPARIN [Suspect]
     Dosage: DAILY DOSE 15000 U
  3. IMMUNOGLOBULIN [Suspect]
     Dosage: 20 G/DAY FOR 5 DAYS
  4. DALTEPARIN SODIUM [Suspect]
     Dosage: 400 IU, QD
  5. PREDNISOLONE [Concomitant]
     Route: 048

REACTIONS (6)
  - Hepatic function abnormal [None]
  - Renal impairment [None]
  - Foetal growth restriction [None]
  - Blood pressure increased [None]
  - Premature delivery [None]
  - Maternal exposure during pregnancy [None]
